FAERS Safety Report 24546645 (Version 1)
Quarter: 2024Q4

REPORT INFORMATION
  Report Type: Report from Study
  Country: CA (occurrence: CA)
  Receive Date: 20241024
  Receipt Date: 20241024
  Transmission Date: 20250115
  Serious: Yes (Hospitalization)
  Sender: SAMSUNG BIOEPIS
  Company Number: CA-SAMSUNG BIOEPIS-SB-2024-31866

PATIENT
  Age: 62 Year
  Sex: Male

DRUGS (1)
  1. RENFLEXIS [Suspect]
     Active Substance: INFLIXIMAB-ABDA
     Indication: Pulmonary sarcoidosis
     Route: 042
     Dates: start: 20241009

REACTIONS (11)
  - Full blood count abnormal [Not Recovered/Not Resolved]
  - Accident [Unknown]
  - Fall [Recovered/Resolved]
  - Confusional state [Not Recovered/Not Resolved]
  - Asthenia [Not Recovered/Not Resolved]
  - Off label use [Unknown]
  - Hypophagia [Unknown]
  - Treatment noncompliance [Unknown]
  - Loss of personal independence in daily activities [Unknown]
  - Malaise [Unknown]
  - Anal incontinence [Unknown]

NARRATIVE: CASE EVENT DATE: 20241017
